FAERS Safety Report 6085130-3 (Version None)
Quarter: 2009Q1

REPORT INFORMATION
  Report Type: 
  Country: None (occurrence: None)
  Receive Date: 20090220
  Receipt Date: 20090211
  Transmission Date: 20090719
  Serious: Yes (Disabling)
  Sender: FDA-Public Use
  Company Number: PHBS2007MX18206

PATIENT
  Sex: Female

DRUGS (2)
  1. ACLASTA [Suspect]
     Indication: OSTEOPOROSIS
     Dosage: 5 MG, UNK
     Dates: start: 20070717
  2. ANTIHYPERTENSIVES [Concomitant]
     Indication: HYPERTENSION

REACTIONS (5)
  - FALL [None]
  - FEMORAL NECK FRACTURE [None]
  - HIP ARTHROPLASTY [None]
  - HUMERUS FRACTURE [None]
  - OSTEOSYNTHESIS [None]
